FAERS Safety Report 5993254-1 (Version None)
Quarter: 2008Q4

REPORT INFORMATION
  Report Type: 
  Country: None (occurrence: None)
  Receive Date: 20081210
  Receipt Date: 20081210
  Transmission Date: 20090506
  Serious: Yes (Other)
  Sender: FDA-Public Use
  Company Number: None

PATIENT
  Age: 66 Year
  Sex: Female
  Weight: 63.5036 kg

DRUGS (2)
  1. ALENDRONATE SODIUM [Suspect]
     Indication: BONE SCAN
     Dosage: 1 TABLET WEEKLY PO
     Route: 048
     Dates: start: 20080218, end: 20080506
  2. ACTONEL [Suspect]
     Indication: BONE SCAN
     Dosage: 1 TABLET WEEKLY PO
     Route: 048
     Dates: start: 20080811, end: 20080825

REACTIONS (2)
  - MYALGIA [None]
  - PAIN [None]
